FAERS Safety Report 12651153 (Version 1)
Quarter: 2016Q3

REPORT INFORMATION
  Report Type: Spontaneous
  Country: US (occurrence: None)
  Receive Date: 20160812
  Receipt Date: 20160812
  Transmission Date: 20161109
  Serious: No
  Sender: FDA-Public Use
  Company Number: None

PATIENT
  Age: 73 Year
  Sex: Female

DRUGS (20)
  1. CIPROFLOXACN [Concomitant]
     Active Substance: CIPROFLOXACIN
  2. CYCLOBENZAPR [Concomitant]
  3. LOMOTIL [Concomitant]
     Active Substance: ATROPINE SULFATE\DIPHENOXYLATE HYDROCHLORIDE
  4. MULTIVITAMIN [Concomitant]
     Active Substance: VITAMINS
  5. ROPINIROLE. [Concomitant]
     Active Substance: ROPINIROLE
  6. ENBREL [Suspect]
     Active Substance: ETANERCEPT
     Indication: RHEUMATOID ARTHRITIS
     Route: 058
     Dates: start: 20110426
  7. FUROSEMIDE. [Concomitant]
     Active Substance: FUROSEMIDE
  8. DOXCYCK HYC [Concomitant]
  9. HYDROMORPHON [Concomitant]
     Active Substance: HYDROMORPHONE
  10. JANUVIA [Concomitant]
     Active Substance: SITAGLIPTIN PHOSPHATE
  11. LYRICA [Concomitant]
     Active Substance: PREGABALIN
  12. ARAVA [Concomitant]
     Active Substance: LEFLUNOMIDE
  13. LEVOTHYROXIN [Concomitant]
     Active Substance: LEVOTHYROXINE
  14. CARVEDILOL. [Concomitant]
     Active Substance: CARVEDILOL
  15. COZAAR [Concomitant]
     Active Substance: LOSARTAN POTASSIUM
  16. BACLOFEN. [Concomitant]
     Active Substance: BACLOFEN
  17. IBUPROFEN. [Concomitant]
     Active Substance: IBUPROFEN
  18. METRONIDAZOL [Concomitant]
     Active Substance: METRONIDAZOLE
  19. OXYCODONE [Concomitant]
     Active Substance: OXYCODONE
  20. SMZ-TMP [Concomitant]
     Active Substance: SULFAMETHOXAZOLE\TRIMETHOPRIM

REACTIONS (2)
  - Hand fracture [None]
  - Fall [None]

NARRATIVE: CASE EVENT DATE: 20160801
